FAERS Safety Report 7030446-7 (Version None)
Quarter: 2010Q4

REPORT INFORMATION
  Report Type: 
  Country: None (occurrence: None)
  Receive Date: 20101006
  Receipt Date: 20100922
  Transmission Date: 20110411
  Serious: Yes (Death, Other)
  Sender: FDA-Public Use
  Company Number: GB-BAUSCH-2010BL005415

PATIENT
  Age: 46 Year
  Sex: Male

DRUGS (2)
  1. PREDNISOLONE [Suspect]
     Indication: RENAL TRANSPLANT
  2. CYCLOSPORINE [Suspect]
     Indication: RENAL TRANSPLANT

REACTIONS (4)
  - BILIARY FIBROSIS [None]
  - HEPATIC NEOPLASM MALIGNANT RECURRENT [None]
  - HEPATITIS C [None]
  - TUMOUR INVASION [None]
